FAERS Safety Report 9881947 (Version 1)
Quarter: 2014Q1

REPORT INFORMATION
  Report Type: Spontaneous
  Country: US (occurrence: None)
  Receive Date: 20140205
  Receipt Date: 20140205
  Transmission Date: 20141002
  Serious: Yes (Hospitalization)
  Sender: FDA-Public Use
  Company Number: A1059153A

PATIENT
  Age: 19 Year
  Sex: Male

DRUGS (4)
  1. LAMOTRIGINE [Suspect]
     Indication: PRODUCT USED FOR UNKNOWN INDICATION
  2. CITALOPRAM [Suspect]
     Indication: PRODUCT USED FOR UNKNOWN INDICATION
  3. ARIPIPRAZOLE [Concomitant]
  4. LORAZEPAM [Concomitant]

REACTIONS (6)
  - Electrocardiogram QRS complex prolonged [None]
  - Unresponsive to stimuli [None]
  - Pyrexia [None]
  - Serotonin syndrome [None]
  - Overdose [None]
  - Ventricular tachycardia [None]
